FAERS Safety Report 5292246-8 (Version None)
Quarter: 2007Q2

REPORT INFORMATION
  Report Type: 
  Country: None (occurrence: None)
  Receive Date: 20070403
  Receipt Date: 20070320
  Transmission Date: 20071010
  Serious: Yes (Hospitalization)
  Sender: FDA-Public Use
  Company Number: 1543111SR

PATIENT
  Age: 39 Year
  Sex: Male

DRUGS (10)
  1. CISPLATIN [Suspect]
     Indication: OESOPHAGEAL CARCINOMA
     Dosage: CYCLE 2 (100 MG/M2, 1 IN 28 DAYS) (100 MG/M2)
     Route: 041
     Dates: start: 20060919, end: 20060924
  2. CISPLATIN [Suspect]
     Indication: OESOPHAGEAL CARCINOMA
     Dosage: CYCLE 2 (100 MG/M2, 1 IN 28 DAYS) (100 MG/M2)
     Route: 041
     Dates: start: 20060822
  3. FLUOROURACIL [Suspect]
     Indication: OESOPHAGEAL CARCINOMA
     Dosage: CYCLE 2 DAY 1-3 EVERY 28 DAYS (1000 MG/M2, 1 IN 1 D) INTRAVENOUS DRIP
     Route: 041
     Dates: start: 20060919, end: 20060924
  4. FLUOROURACIL [Suspect]
     Indication: OESOPHAGEAL CARCINOMA
     Dosage: CYCLE 2 DAY 1-3 EVERY 28 DAYS (1000 MG/M2, 1 IN 1 D) INTRAVENOUS DRIP
     Route: 041
     Dates: start: 20060822
  5. CYCLIZINE [Concomitant]
  6. GRANISETRON [Concomitant]
  7. MORPHINE SULFATE [Concomitant]
  8. PANTOPRAZOLE [Concomitant]
  9. DEXAMETHASONE 0.5MG TAB [Concomitant]
  10. OMEPRAZOLE [Suspect]

REACTIONS (2)
  - CATHETER SITE CELLULITIS [None]
  - ORAL CANDIDIASIS [None]
